FAERS Safety Report 4777201-6 (Version None)
Quarter: 2005Q3

REPORT INFORMATION
  Report Type: 
  Country: None (occurrence: None)
  Receive Date: 20050923
  Receipt Date: 20050808
  Transmission Date: 20060218
  Serious: Yes (Other)
  Sender: FDA-Public Use
  Company Number: US-MERCK-0508USA01541

PATIENT
  Age: 47 Year
  Sex: Male
  Weight: 80 kg

DRUGS (12)
  1. VIOXX [Suspect]
     Indication: BACK PAIN
     Route: 048
     Dates: start: 20020730, end: 20030820
  2. IBUPROFEN [Concomitant]
     Route: 065
  3. METHOCARBAMOL [Concomitant]
     Route: 065
  4. LEVAQUIN [Concomitant]
     Route: 065
  5. PLAVIX [Concomitant]
     Route: 065
  6. LIPITOR [Concomitant]
     Route: 065
  7. TOPROL-XL [Concomitant]
     Route: 065
  8. NITROLINGUAL [Concomitant]
     Route: 065
  9. KEFLEX [Concomitant]
     Route: 065
  10. ISOSORBIDE [Concomitant]
     Route: 065
  11. ACETAMINOPHEN AND CODEINE [Concomitant]
     Route: 065
  12. [THERAPY UNSPECIFIED] [Concomitant]
     Route: 065

REACTIONS (3)
  - CORONARY ARTERY DISEASE [None]
  - LIMB INJURY [None]
  - MYOCARDIAL INFARCTION [None]
